FAERS Safety Report 7719911-4 (Version None)
Quarter: 2011Q3

REPORT INFORMATION
  Report Type: 
  Country: None (occurrence: None)
  Receive Date: 20110831
  Receipt Date: 20110822
  Transmission Date: 20111222
  Serious: No
  Sender: FDA-Public Use
  Company Number: US-BIOGENIDEC-2011BI032452

PATIENT
  Age: 46 Year
  Sex: Female

DRUGS (1)
  1. TYSABRI [Suspect]
     Indication: MULTIPLE SCLEROSIS
     Route: 042
     Dates: start: 20110816

REACTIONS (8)
  - HYPOAESTHESIA [None]
  - HEART RATE INCREASED [None]
  - PANIC REACTION [None]
  - PARAESTHESIA [None]
  - ARTHRALGIA [None]
  - FATIGUE [None]
  - COLD SWEAT [None]
  - HYPERHIDROSIS [None]
